FAERS Safety Report 15020146 (Version 1)
Quarter: 2018Q2

REPORT INFORMATION
  Report Type: Spontaneous
  Country: NO (occurrence: NO)
  Receive Date: 20180618
  Receipt Date: 20180618
  Transmission Date: 20180711
  Serious: Yes (Other)
  Sender: FDA-Public Use
  Company Number: NO-ORION CORPORATION ORION PHARMA-ENTC2018-0186

PATIENT
  Age: 59 Year
  Sex: Male

DRUGS (1)
  1. STALEVO [Suspect]
     Active Substance: CARBIDOPA\ENTACAPONE\LEVODOPA
     Indication: PARKINSON^S DISEASE
     Dosage: 7 O^CLOCK : STALEVO 200 MG/50 MG/200 MG, 9 O^CLOCK: STALEVO 125 MG/31,25 MG/200 MG, 12 O^CLOCK : STA
     Route: 065

REACTIONS (1)
  - Gastric haemorrhage [Unknown]
